FAERS Safety Report 18545189 (Version 1)
Quarter: 2020Q4

REPORT INFORMATION
  Report Type: Spontaneous
  Country: US (occurrence: US)
  Receive Date: 20201125
  Receipt Date: 20201125
  Transmission Date: 20210114
  Serious: No
  Sender: FDA-Public Use
  Company Number: None

PATIENT
  Sex: Female

DRUGS (2)
  1. BUDESONIDE 0.5MG/2ML [Suspect]
     Active Substance: BUDESONIDE
  2. LEVALBUTEROL 1.25MG/3ML [Suspect]
     Active Substance: LEVALBUTEROL HYDROCHLORIDE

REACTIONS (2)
  - Hypersensitivity [None]
  - Asthma [None]
